FAERS Safety Report 26198921 (Version 1)
Quarter: 2025Q4

REPORT INFORMATION
  Report Type: Spontaneous
  Country: VN (occurrence: VN)
  Receive Date: 20251225
  Receipt Date: 20251225
  Transmission Date: 20260118
  Serious: Yes (Other)
  Sender: ROCHE
  Company Number: VN-ROCHE-10000465844

PATIENT
  Age: 78 Year
  Sex: Male

DRUGS (2)
  1. ATEZOLIZUMAB [Suspect]
     Active Substance: ATEZOLIZUMAB
     Indication: Hepatocellular carcinoma
     Dosage: 5 CYCLES
  2. AVASTIN [Suspect]
     Active Substance: BEVACIZUMAB
     Indication: Hepatocellular carcinoma
     Dosage: 5 CYCLES

REACTIONS (4)
  - Fatigue [Unknown]
  - Therapy partial responder [Unknown]
  - Hypopituitarism [Unknown]
  - Adrenal insufficiency [Unknown]
